FAERS Safety Report 24459123 (Version 1)
Quarter: 2024Q4

REPORT INFORMATION
  Report Type: Report from Study
  Country: US (occurrence: US)
  Receive Date: 20241018
  Receipt Date: 20241018
  Transmission Date: 20250114
  Serious: No
  Sender: ROCHE
  Company Number: US-ROCHE-3524164

PATIENT
  Age: 54 Year
  Sex: Female

DRUGS (3)
  1. RITUXIMAB [Suspect]
     Active Substance: RITUXIMAB
     Indication: Osteoarthritis
     Route: 041
  2. LEFLUNOMIDE [Concomitant]
     Active Substance: LEFLUNOMIDE
  3. BIOTIN [Concomitant]
     Active Substance: BIOTIN

REACTIONS (2)
  - Off label use [Unknown]
  - No adverse event [Unknown]
